FAERS Safety Report 5625335-6 (Version None)
Quarter: 2008Q1

REPORT INFORMATION
  Report Type: 
  Country: None (occurrence: None)
  Receive Date: 20080211
  Receipt Date: 20080204
  Transmission Date: 20080703
  Serious: Yes (Death)
  Sender: FDA-Public Use
  Company Number: 2008-00743

PATIENT
  Age: 26 Year
  Sex: Male

DRUGS (5)
  1. FIORICET [Suspect]
  2. DIPHENHYDRAMINE HCL [Suspect]
  3. LAMOTRIGINE [Suspect]
  4. ZYPREXA [Suspect]
  5. VENLAFAXINE HCL [Suspect]

REACTIONS (1)
  - CARDIO-RESPIRATORY ARREST [None]
